FAERS Safety Report 13044267 (Version 1)
Quarter: 2016Q4

REPORT INFORMATION
  Report Type: Spontaneous
  Country: US (occurrence: US)
  Receive Date: 20161219
  Receipt Date: 20161219
  Transmission Date: 20170207
  Serious: Yes (Life-Threatening, Hospitalization, Disabling, Other)
  Sender: FDA-Public Use
  Company Number: None

PATIENT
  Sex: Female
  Weight: 99 kg

DRUGS (9)
  1. PROZAC [Concomitant]
     Active Substance: FLUOXETINE HYDROCHLORIDE
  2. NUVIGIL [Concomitant]
     Active Substance: ARMODAFINIL
  3. SEROQUEL XR [Suspect]
     Active Substance: QUETIAPINE FUMARATE
     Indication: ANXIETY
     Dosage: ?          QUANTITY:1 TABLET(S);?
     Route: 048
     Dates: start: 20130103, end: 20161205
  4. TEMAZEPAM. [Concomitant]
     Active Substance: TEMAZEPAM
  5. SYNTHROID [Concomitant]
     Active Substance: LEVOTHYROXINE SODIUM
  6. ASPIRIN. [Concomitant]
     Active Substance: ASPIRIN
  7. ALLEGRA [Concomitant]
     Active Substance: FEXOFENADINE HYDROCHLORIDE
  8. LEUCOVORIN CA [Concomitant]
  9. BIOTIN [Concomitant]
     Active Substance: BIOTIN

REACTIONS (10)
  - Heart rate decreased [None]
  - Chest pain [None]
  - Wrong technique in product usage process [None]
  - Fatigue [None]
  - Arrhythmia [None]
  - Extrasystoles [None]
  - Anxiety [None]
  - Weight increased [None]
  - Drug prescribing error [None]
  - Dyspnoea [None]

NARRATIVE: CASE EVENT DATE: 20161108
